FAERS Safety Report 19969723 (Version 1)
Quarter: 2021Q4

REPORT INFORMATION
  Report Type: Spontaneous
  Country: CN (occurrence: CN)
  Receive Date: 20211019
  Receipt Date: 20211019
  Transmission Date: 20220303
  Serious: Yes (Other)
  Sender: FDA-Public Use
  Company Number: CN-PFIZER INC-202101343136

PATIENT
  Age: 6 Year
  Sex: Female
  Weight: 30 kg

DRUGS (12)
  1. CYTARABINE [Suspect]
     Active Substance: CYTARABINE
     Indication: Burkitt^s lymphoma
     Dosage: 0.15 G, 2X/DAY
     Route: 041
     Dates: start: 20210902, end: 20210902
  2. CYTARABINE [Suspect]
     Active Substance: CYTARABINE
     Indication: HIV infection
  3. METHOTREXATE [Suspect]
     Active Substance: METHOTREXATE
     Indication: Burkitt^s lymphoma
     Dosage: 0.5 G, 1X/DAY
     Route: 041
     Dates: start: 20210902, end: 20210902
  4. METHOTREXATE [Suspect]
     Active Substance: METHOTREXATE
     Indication: HIV infection
  5. IFOSFAMIDE [Suspect]
     Active Substance: IFOSFAMIDE
     Indication: Burkitt^s lymphoma
     Dosage: 0.8 G, 1X/DAY
     Route: 041
     Dates: start: 20210901, end: 20210906
  6. IFOSFAMIDE [Suspect]
     Active Substance: IFOSFAMIDE
     Indication: HIV infection
  7. ETOPOSIDE [Suspect]
     Active Substance: ETOPOSIDE
     Indication: Burkitt^s lymphoma
     Dosage: 0.1 G, 1X/DAY
     Route: 041
     Dates: start: 20210902, end: 20210902
  8. ETOPOSIDE [Suspect]
     Active Substance: ETOPOSIDE
     Indication: HIV infection
  9. SODIUM CHLORIDE [Concomitant]
     Active Substance: SODIUM CHLORIDE
     Indication: Burkitt^s lymphoma
     Dosage: 100 ML, 1X/DAY
     Route: 041
     Dates: start: 20210901, end: 20210906
  10. SODIUM CHLORIDE [Concomitant]
     Active Substance: SODIUM CHLORIDE
     Indication: HIV infection
     Dosage: 500 ML, 1X/DAY
     Route: 041
     Dates: start: 20210902, end: 20210902
  11. SODIUM CHLORIDE [Concomitant]
     Active Substance: SODIUM CHLORIDE
     Dosage: 4 ML, 2X/DAY
     Route: 041
     Dates: start: 20210902, end: 20210902
  12. SODIUM CHLORIDE [Concomitant]
     Active Substance: SODIUM CHLORIDE
     Dosage: 500 ML, 1X/DAY
     Route: 041
     Dates: start: 20210902, end: 20210902

REACTIONS (3)
  - Transaminases increased [Recovering/Resolving]
  - Granulocyte count increased [Recovering/Resolving]
  - Neutrophil count decreased [Recovering/Resolving]

NARRATIVE: CASE EVENT DATE: 20210906
